FAERS Safety Report 15179230 (Version 3)
Quarter: 2020Q1

REPORT INFORMATION
  Report Type: Spontaneous
  Country: US (occurrence: US)
  Receive Date: 20180723
  Receipt Date: 20200304
  Transmission Date: 20200409
  Serious: Yes (Hospitalization, Other)
  Sender: FDA-Public Use
  Company Number: US-AMGEN-USASP2018098038

PATIENT
  Age: 53 Year
  Sex: Female

DRUGS (7)
  1. NEXIUM I.V. [Concomitant]
     Active Substance: ESOMEPRAZOLE SODIUM
  2. CALCIUM + VITAMIN D3 [Concomitant]
     Active Substance: CALCIUM CARBONATE\CHOLECALCIFEROL
     Dosage: 800 MILLIGRAM AND D3
  3. PROLIA [Suspect]
     Active Substance: DENOSUMAB
     Indication: OSTEOPOROSIS POSTMENOPAUSAL
     Dosage: 60 MG, UNK
     Route: 065
  4. COMBIPATCH [Concomitant]
     Active Substance: ESTRADIOL\NORETHINDRONE ACETATE
     Dosage: UNK
  5. RECLAST [Suspect]
     Active Substance: ZOLEDRONIC ACID
     Indication: OSTEOPOROSIS POSTMENOPAUSAL
     Dosage: UNK
     Route: 065
  6. TYMLOS [Suspect]
     Active Substance: ABALOPARATIDE
     Indication: OSTEOPOROSIS POSTMENOPAUSAL
     Dosage: UNK
     Route: 065
  7. PROLIA [Suspect]
     Active Substance: DENOSUMAB
     Dosage: 60 MG, UNK
     Route: 065
     Dates: start: 201805

REACTIONS (12)
  - Urinary bladder haemorrhage [Recovered/Resolved]
  - Cystitis noninfective [Unknown]
  - Cystitis [Unknown]
  - Urinary tract infection [Unknown]
  - Feeling abnormal [Unknown]
  - Loose tooth [Unknown]
  - Idiopathic urticaria [Not Recovered/Not Resolved]
  - Nausea [Unknown]
  - Gingival bleeding [Unknown]
  - Uveitis [Unknown]
  - Intervertebral disc protrusion [Unknown]
  - Pain [Not Recovered/Not Resolved]

NARRATIVE: CASE EVENT DATE: 2018
